FAERS Safety Report 5201565-2 (Version None)
Quarter: 2006Q4

REPORT INFORMATION
  Report Type: 
  Country: None (occurrence: None)
  Receive Date: 20061006
  Receipt Date: 20051003
  Transmission Date: 20070319
  Serious: Yes (Other)
  Sender: FDA-Public Use
  Company Number: PHEH2005US10955

PATIENT
  Sex: Female

DRUGS (6)
  1. ESTALIS COMBIPATCH(ESTRADIOL, NORETHISTERONE ACETATE) TRANS-THERAPEUTI [Suspect]
     Indication: HORMONE REPLACEMENT THERAPY
     Dosage: TRANSDERMAL
     Route: 062
  2. PREMPRO [Suspect]
     Indication: DRUG USE FOR UNKNOWN INDICATION
  3. PREMARIN [Suspect]
     Indication: DRUG USE FOR UNKNOWN INDICATION
  4. PROVERA [Suspect]
     Indication: DRUG USE FOR UNKNOWN INDICATION
  5. ESTROGENS SOL/INJ [Suspect]
     Indication: DRUG USE FOR UNKNOWN INDICATION
  6. MEDROXYPROGESTERONE ACETATE [Suspect]
     Indication: DRUG USE FOR UNKNOWN INDICATION

REACTIONS (5)
  - BREAST CANCER [None]
  - EMOTIONAL DISTRESS [None]
  - LYMPHADENECTOMY [None]
  - MASTECTOMY [None]
  - SCAR [None]
